FAERS Safety Report 6649318-2 (Version None)
Quarter: 2010Q1

REPORT INFORMATION
  Report Type: 
  Country: None (occurrence: None)
  Receive Date: 20100324
  Receipt Date: 20100322
  Transmission Date: 20100710
  Serious: Yes (Other)
  Sender: FDA-Public Use
  Company Number: US-WYE-H12534509

PATIENT
  Sex: Female

DRUGS (7)
  1. EFFEXOR XR [Suspect]
     Indication: DEPRESSION
     Route: 048
     Dates: start: 20071221, end: 20080106
  2. EFFEXOR XR [Suspect]
     Route: 048
     Dates: start: 20080107, end: 20080207
  3. EFFEXOR XR [Suspect]
     Route: 048
     Dates: start: 20080208, end: 20090109
  4. EFFEXOR XR [Suspect]
     Route: 048
     Dates: start: 20090110, end: 20090914
  5. EFFEXOR XR [Suspect]
     Route: 048
     Dates: start: 20090915, end: 20091001
  6. EFFEXOR XR [Suspect]
     Dosage: WEANED OFF
     Route: 048
     Dates: start: 20091001, end: 20091116
  7. KLONOPIN [Concomitant]
     Dosage: AS NEEDED

REACTIONS (18)
  - ABDOMINAL PAIN UPPER [None]
  - ACTIVITIES OF DAILY LIVING IMPAIRED [None]
  - ALOPECIA [None]
  - CHEST DISCOMFORT [None]
  - DECREASED APPETITE [None]
  - DIZZINESS [None]
  - DRUG WITHDRAWAL SYNDROME [None]
  - DYSKINESIA [None]
  - EYE DISORDER [None]
  - EYE PAIN [None]
  - FATIGUE [None]
  - HEADACHE [None]
  - INFLUENZA LIKE ILLNESS [None]
  - NAUSEA [None]
  - PAIN [None]
  - SLUGGISHNESS [None]
  - TRICHORRHEXIS [None]
  - VISION BLURRED [None]
